FAERS Safety Report 11884112 (Version 1)
Quarter: 2016Q1

REPORT INFORMATION
  Report Type: Spontaneous
  Country: GB (occurrence: GB)
  Receive Date: 20160103
  Receipt Date: 20160103
  Transmission Date: 20160526
  Serious: Yes (Other)
  Sender: FDA-Public Use
  Company Number: GB-TEVA-620337ACC

PATIENT
  Age: 17 Year
  Sex: Male
  Weight: 51 kg

DRUGS (2)
  1. LACTULOSE SOLUTION [Suspect]
     Active Substance: LACTULOSE
     Indication: CONSTIPATION
     Dosage: 10 ML DAILY;
     Route: 048
     Dates: start: 20151207, end: 20151209
  2. ARTICAINE HYDROCHLORIDE [Concomitant]
     Active Substance: ARTICAINE HYDROCHLORIDE

REACTIONS (2)
  - Rectal discharge [Not Recovered/Not Resolved]
  - Anal incontinence [Not Recovered/Not Resolved]

NARRATIVE: CASE EVENT DATE: 20151207
